FAERS Safety Report 17779856 (Version 2)
Quarter: 2020Q2

REPORT INFORMATION
  Report Type: Report from Study
  Country: US (occurrence: US)
  Receive Date: 20200513
  Receipt Date: 20200526
  Transmission Date: 20200714
  Serious: Yes (Death)
  Sender: FDA-Public Use
  Company Number: US-ACTELION-A-US2019-194581

PATIENT
  Sex: Female
  Weight: 55.33 kg

DRUGS (24)
  1. OXYGEN. [Concomitant]
     Active Substance: OXYGEN
  2. BUSPIRONE HYDROCHLORIDE. [Concomitant]
     Active Substance: BUSPIRONE HYDROCHLORIDE
     Dosage: 5 MG, BID
     Route: 048
  3. CRANBERRY COMPLEX [Concomitant]
  4. ESTRING [Concomitant]
     Active Substance: ESTRADIOL
     Dosage: 2 MG
     Route: 067
  5. OMEPRAZOLE. [Concomitant]
     Active Substance: OMEPRAZOLE
     Dosage: 20 MG, BID
     Route: 048
  6. ONDANSETRON [Concomitant]
     Active Substance: ONDANSETRON
     Dosage: 4 MG, QD AS NEEDED ON TONGUE
  7. VITAMIN D3 [Concomitant]
     Active Substance: CHOLECALCIFEROL
     Dosage: 1000 IU, QD
     Route: 048
  8. HORMONE BALANCE NATURAL HRT [Concomitant]
     Dosage: 4 MG, QD
     Route: 061
  9. ADEMPAS [Suspect]
     Active Substance: RIOCIGUAT
     Dosage: 2.5 MG
     Route: 065
  10. LORAZEPAM. [Concomitant]
     Active Substance: LORAZEPAM
     Indication: DYSPNOEA
     Dosage: 0.5 MG, Q6HRS AS NEEDED
     Route: 048
  11. SPIRONOLACTONE. [Concomitant]
     Active Substance: SPIRONOLACTONE
     Dosage: 25 MG, QD
     Route: 048
  12. GABAPENTIN. [Concomitant]
     Active Substance: GABAPENTIN
     Dosage: 300 MG, QPM
     Route: 048
  13. GABAPENTIN. [Concomitant]
     Active Substance: GABAPENTIN
     Dosage: 100 MG, TID
     Route: 048
  14. TESTOSTERONE. [Concomitant]
     Active Substance: TESTOSTERONE
     Dosage: 40 MG, QD
     Route: 062
  15. PANCREAS [Concomitant]
     Dosage: 168, 1 TABLET
     Route: 048
  16. ATIVAN [Concomitant]
     Active Substance: LORAZEPAM
     Indication: ANXIETY
  17. LORAZEPAM. [Concomitant]
     Active Substance: LORAZEPAM
     Indication: ANXIETY
  18. CURCUMIN TURMERIC [Concomitant]
     Dosage: 500 MG, BID
     Route: 048
  19. OPSUMIT [Suspect]
     Active Substance: MACITENTAN
     Indication: PULMONARY ARTERIAL HYPERTENSION
     Dosage: 10 MG, QD
     Route: 048
     Dates: start: 20190104
  20. ADEMPAS [Suspect]
     Active Substance: RIOCIGUAT
     Indication: PRODUCT USED FOR UNKNOWN INDICATION
     Dosage: 2 MG, TID
     Route: 065
  21. FUROSEMIDE. [Concomitant]
     Active Substance: FUROSEMIDE
     Dosage: 40 MG, QD
     Route: 048
  22. ATIVAN [Concomitant]
     Active Substance: LORAZEPAM
     Indication: DYSPNOEA
     Dosage: 1/2 - 1 TABLET AS NEEDED EVERY 6 HRS
     Route: 048
  23. LIDOCAINE. [Concomitant]
     Active Substance: LIDOCAINE
     Dosage: 5 %, Q4HRS
     Route: 067
  24. ACETAMINOPHEN;HYDROCODONE [Concomitant]
     Active Substance: ACETAMINOPHEN\HYDROCODONE
     Dosage: 5-325 MG AS NEEDED Q6H
     Route: 048

REACTIONS (4)
  - Hypotension [Unknown]
  - Respiratory failure [Fatal]
  - Hypoxia [Fatal]
  - Fluid retention [Unknown]
